FAERS Safety Report 12346985 (Version 5)
Quarter: 2016Q3

REPORT INFORMATION
  Report Type: Spontaneous
  Country: FR (occurrence: FR)
  Receive Date: 20160509
  Receipt Date: 20160830
  Transmission Date: 20161109
  Serious: Yes (Other)
  Sender: FDA-Public Use
  Company Number: FR-ABBVIE-16K-056-1620953-00

PATIENT
  Age: 11 Year
  Sex: Female

DRUGS (1)
  1. HUMIRA [Suspect]
     Active Substance: ADALIMUMAB
     Indication: CROHN^S DISEASE
     Route: 058
     Dates: start: 20160224, end: 201605

REACTIONS (15)
  - Antineutrophil cytoplasmic antibody positive [Not Recovered/Not Resolved]
  - Autoantibody positive [Not Recovered/Not Resolved]
  - Encephalopathy [Not Recovered/Not Resolved]
  - Psychomotor hyperactivity [Not Recovered/Not Resolved]
  - Hyperventilation [Not Recovered/Not Resolved]
  - Cognitive disorder [Not Recovered/Not Resolved]
  - Hyperventilation [Not Recovered/Not Resolved]
  - Electroencephalogram abnormal [Not Recovered/Not Resolved]
  - Hallucination, auditory [Recovered/Resolved]
  - Encephalitis autoimmune [Not Recovered/Not Resolved]
  - Hallucination, visual [Recovered/Resolved]
  - Aphasia [Unknown]
  - Antineutrophil cytoplasmic antibody positive [Not Recovered/Not Resolved]
  - Encephalitis autoimmune [Not Recovered/Not Resolved]
  - Serology abnormal [Not Recovered/Not Resolved]

NARRATIVE: CASE EVENT DATE: 2016
